FAERS Safety Report 24956310 (Version 1)
Quarter: 2025Q1

REPORT INFORMATION
  Report Type: Report from Study
  Country: RO (occurrence: RO)
  Receive Date: 20250211
  Receipt Date: 20250211
  Transmission Date: 20250409
  Serious: Yes (Other)
  Sender: JOHNSON AND JOHNSON
  Company Number: RO-JNJFOC-20250209729

PATIENT

DRUGS (4)
  1. INFLIXIMAB [Suspect]
     Active Substance: INFLIXIMAB
     Indication: Crohn^s disease
     Route: 041
  2. INFLIXIMAB [Suspect]
     Active Substance: INFLIXIMAB
     Indication: Colitis ulcerative
  3. ADALIMUMAB [Suspect]
     Active Substance: ADALIMUMAB
     Indication: Crohn^s disease
     Route: 065
  4. ADALIMUMAB [Suspect]
     Active Substance: ADALIMUMAB
     Indication: Colitis ulcerative

REACTIONS (10)
  - Hypersensitivity vasculitis [Unknown]
  - Pneumonia [Unknown]
  - Clostridium difficile infection [Unknown]
  - Pulmonary tuberculosis [Unknown]
  - Measles [Unknown]
  - Respiratory failure [Unknown]
  - Papilloma viral infection [Unknown]
  - Varicella zoster virus infection [Unknown]
  - Infusion related reaction [Unknown]
  - Drug specific antibody [Unknown]
